FAERS Safety Report 7024974-8 (Version None)
Quarter: 2010Q4

REPORT INFORMATION
  Report Type: 
  Country: None (occurrence: None)
  Receive Date: 20101001
  Receipt Date: 20100921
  Transmission Date: 20110411
  Serious: Yes (Hospitalization, Disabling, Other)
  Sender: FDA-Public Use
  Company Number: US-PFIZER INC-2008091603

PATIENT
  Sex: Male

DRUGS (2)
  1. CELEBREX [Suspect]
     Indication: PAIN MANAGEMENT
     Dosage: UNK MG, 1X/DAY
     Dates: start: 20030101, end: 20070101
  2. BEXTRA [Suspect]
     Indication: PAIN MANAGEMENT
     Dosage: 10 MG, UNK
     Route: 048
     Dates: start: 20020101, end: 20050101

REACTIONS (13)
  - BONE DISORDER [None]
  - COAGULOPATHY [None]
  - DEPRESSION [None]
  - DIABETES MELLITUS [None]
  - DIARRHOEA [None]
  - GASTROINTESTINAL DISORDER [None]
  - HYPERTENSION [None]
  - IMPAIRED HEALING [None]
  - ISCHAEMIC STROKE [None]
  - MEMORY IMPAIRMENT [None]
  - MIGRAINE [None]
  - MYOCARDIAL INFARCTION [None]
  - VISION BLURRED [None]
